FAERS Safety Report 6220679-1 (Version None)
Quarter: 2009Q2

REPORT INFORMATION
  Report Type: 
  Country: None (occurrence: None)
  Receive Date: 20090610
  Receipt Date: 20080519
  Transmission Date: 20091009
  Serious: Yes (Other)
  Sender: FDA-Public Use
  Company Number: US-ASTRAZENECA-2008UW10612

PATIENT
  Age: 46 Year
  Sex: Male
  Weight: 113.4 kg

DRUGS (10)
  1. SEROQUEL [Suspect]
     Indication: BIPOLAR DISORDER
     Route: 048
     Dates: start: 20030901, end: 20050101
  2. SEROQUEL [Suspect]
     Indication: DEPRESSION
     Route: 048
     Dates: start: 20030901, end: 20050101
  3. SEROQUEL [Suspect]
     Route: 048
     Dates: start: 20060906
  4. SEROQUEL [Suspect]
     Route: 048
     Dates: start: 20060906
  5. ZYPREXA [Concomitant]
  6. ZOLOFT [Concomitant]
  7. ATENOLOL [Concomitant]
     Route: 048
  8. METFORMIN HYDROCHLORIDE [Concomitant]
     Route: 048
  9. GLYBURIDE [Concomitant]
     Route: 048
  10. HYDROCHLOROTHIAZIDE [Concomitant]
     Route: 048

REACTIONS (4)
  - BLOOD CHOLESTEROL INCREASED [None]
  - DIABETES MELLITUS [None]
  - DIABETIC NEUROPATHY [None]
  - TYPE 2 DIABETES MELLITUS [None]
